APPROVED DRUG PRODUCT: ULTRAVATE
Active Ingredient: HALOBETASOL PROPIONATE
Strength: 0.05%
Dosage Form/Route: LOTION;TOPICAL
Application: N208183 | Product #001
Applicant: LACER PHARMA LLC
Approved: Nov 6, 2015 | RLD: Yes | RS: Yes | Type: RX

PATENTS:
Patent 8962028 | Expires: Jun 19, 2033